FAERS Safety Report 4590942-9 (Version None)
Quarter: 2005Q1

REPORT INFORMATION
  Report Type: 
  Country: None (occurrence: None)
  Receive Date: 20050222
  Receipt Date: 20050222
  Transmission Date: 20050727
  Serious: Yes (Death)
  Sender: FDA-Public Use
  Company Number: None

PATIENT
  Age: 55 Year
  Sex: Female

DRUGS (1)
  1. LOVENOX [Suspect]
     Dosage: 75 MG BID SQ
     Route: 058

REACTIONS (5)
  - COAGULOPATHY [None]
  - COMA [None]
  - CONVULSION [None]
  - GENERAL PHYSICAL HEALTH DETERIORATION [None]
  - PLATELET COUNT DECREASED [None]
